FAERS Safety Report 5534373-3 (Version None)
Quarter: 2007Q4

REPORT INFORMATION
  Report Type: 
  Country: None (occurrence: None)
  Receive Date: 20071130
  Receipt Date: 20071120
  Transmission Date: 20080405
  Serious: Yes (Other)
  Sender: FDA-Public Use
  Company Number: 2007-03904

PATIENT
  Sex: Female
  Weight: 64 kg

DRUGS (2)
  1. VELCADE [Suspect]
     Indication: MULTIPLE MYELOMA
     Dosage: 2.50 MG
     Dates: start: 20071018, end: 20071022
  2. CYTARABINE [Suspect]
     Indication: MULTIPLE MYELOMA
     Dosage: 33.00 MG
     Dates: start: 20071008, end: 20071022

REACTIONS (1)
  - CHOLANGITIS [None]
